FAERS Safety Report 19604606 (Version 3)
Quarter: 2021Q3

REPORT INFORMATION
  Report Type: Spontaneous
  Country: US (occurrence: US)
  Receive Date: 20210723
  Receipt Date: 20210810
  Transmission Date: 20211014
  Serious: Yes (Hospitalization, Other)
  Sender: FDA-Public Use
  Company Number: US-PFIZER INC-2021855729

PATIENT
  Age: 21 Year
  Sex: Male

DRUGS (1)
  1. XELJANZ [Suspect]
     Active Substance: TOFACITINIB CITRATE
     Indication: COLITIS ULCERATIVE
     Dosage: 10 MG, 2X/DAY

REACTIONS (10)
  - Gastric haemorrhage [Unknown]
  - Papule [Unknown]
  - Pyrexia [Unknown]
  - Haemoptysis [Unknown]
  - Diarrhoea [Unknown]
  - Acne [Unknown]
  - Pruritus [Unknown]
  - Headache [Unknown]
  - Rash [Unknown]
  - Blister [Unknown]
